FAERS Safety Report 15680039 (Version 1)
Quarter: 2018Q4

REPORT INFORMATION
  Report Type: Spontaneous
  Country: FR (occurrence: FR)
  Receive Date: 20181203
  Receipt Date: 20181203
  Transmission Date: 20190205
  Serious: Yes (Hospitalization, Other)
  Sender: FDA-Public Use
  Company Number: FR-SUN PHARMACEUTICAL INDUSTRIES LTD-2018RR-190814

PATIENT
  Age: 31 Year
  Sex: Male
  Weight: 65 kg

DRUGS (4)
  1. SPASFON (PHLOROGLUCINOL\TRIMETHYLPHLOROGLUCINOL) [Concomitant]
     Active Substance: PHLOROGLUCINOL\1,3,5-TRIMETHOXYBENZENE
     Indication: PRODUCT USED FOR UNKNOWN INDICATION
     Dosage: ()
     Route: 048
     Dates: start: 20181002, end: 20181005
  2. CEFOTAXIME PANPHARMA 1 G, POUDRE POUR SOLUTION INJECTABLE (IM-IV) [Concomitant]
     Indication: PROSTATITIS
     Dosage: 3 G, DAILY
     Route: 042
     Dates: start: 20181002, end: 20181005
  3. PARACETAMOL [Suspect]
     Active Substance: ACETAMINOPHEN
     Indication: PAIN
     Dosage: 1 GRAM
     Route: 048
     Dates: start: 20181002, end: 20181008
  4. IBUPROFENE [Concomitant]
     Active Substance: IBUPROFEN
     Indication: PAIN
     Dosage: 1200 MG, DAILY
     Route: 048
     Dates: start: 20181003

REACTIONS (1)
  - Neutropenia [Recovered/Resolved]

NARRATIVE: CASE EVENT DATE: 20181005
